FAERS Safety Report 13932362 (Version 2)
Quarter: 2017Q3

REPORT INFORMATION
  Report Type: Report from Study
  Country: DE (occurrence: DE)
  Receive Date: 20170904
  Receipt Date: 20170913
  Transmission Date: 20171127
  Serious: Yes (Death, Hospitalization, Disabling, Other)
  Sender: FDA-Public Use
  Company Number: DE-JNJFOC-20170901242

PATIENT
  Age: 81 Year
  Sex: Male
  Weight: 109 kg

DRUGS (1)
  1. XARELTO [Suspect]
     Active Substance: RIVAROXABAN
     Indication: ATRIAL FIBRILLATION
     Route: 048
     Dates: start: 20121117

REACTIONS (3)
  - Cerebral haemorrhage [Fatal]
  - Wound dehiscence [Unknown]
  - Laceration [Unknown]

NARRATIVE: CASE EVENT DATE: 20161108
